APPROVED DRUG PRODUCT: RUFINAMIDE
Active Ingredient: RUFINAMIDE
Strength: 200MG
Dosage Form/Route: TABLET;ORAL
Application: A217230 | Product #001 | TE Code: AB
Applicant: AUROBINDO PHARMA LTD
Approved: Jun 16, 2023 | RLD: No | RS: No | Type: RX